FAERS Safety Report 6426717-5 (Version None)
Quarter: 2009Q4

REPORT INFORMATION
  Report Type: 
  Country: None (occurrence: None)
  Receive Date: 20091104
  Receipt Date: 20091027
  Transmission Date: 20100525
  Serious: Yes (Other)
  Sender: FDA-Public Use
  Company Number: MY-ELI_LILLY_AND_COMPANY-MY200910007317

PATIENT
  Sex: Female
  Weight: 103 kg

DRUGS (7)
  1. BYETTA [Suspect]
     Indication: TYPE 2 DIABETES MELLITUS
     Dosage: 5 UG, 2/D
     Route: 058
     Dates: start: 20090914, end: 20090919
  2. GLICLAZIDE [Concomitant]
     Indication: DIABETES MELLITUS
     Dosage: 80 MG, 2/D
     Route: 065
  3. METFORMIN [Concomitant]
     Indication: DIABETES MELLITUS
     Dosage: 1 G, 2/D
     Route: 065
  4. LOVASTATIN [Concomitant]
     Indication: BLOOD CHOLESTEROL
     Dosage: 20 MG, EACH EVENING
     Route: 065
  5. PERINDOPRIL [Concomitant]
     Indication: HYPERTENSION
     Dosage: 80 MG, DAILY (1/D)
     Route: 065
  6. RANITIDINE [Concomitant]
     Dosage: 150 MG, DAILY (1/D)
     Route: 065
  7. MAGNESIUM TRISILICATE [Concomitant]
     Dosage: 10 ML, 3/D
     Route: 065

REACTIONS (2)
  - BACK PAIN [None]
  - DIARRHOEA [None]
